FAERS Safety Report 12038742 (Version 3)
Quarter: 2016Q3

REPORT INFORMATION
  Report Type: Report from Study
  Country: NL (occurrence: NL)
  Receive Date: 20160208
  Receipt Date: 20160726
  Transmission Date: 20161109
  Serious: Yes (Death, Hospitalization)
  Sender: FDA-Public Use
  Company Number: NL-ROCHE-1706565

PATIENT
  Age: 56 Year
  Sex: Female

DRUGS (7)
  1. TRAMADOL. [Concomitant]
     Active Substance: TRAMADOL
     Route: 065
     Dates: start: 20160105, end: 20160201
  2. LIPOSOMAL DOXORUBICIN [Suspect]
     Active Substance: DOXORUBICIN HYDROCHLORIDE
     Indication: BREAST CANCER METASTATIC
     Route: 042
  3. BEVACIZUMAB [Suspect]
     Active Substance: BEVACIZUMAB
     Indication: BREAST CANCER METASTATIC
     Dosage: LAST DATE OF ADMINISTRATION: 10/NOV/2015, THERAPY DURATION: 52 WEEK
     Route: 042
     Dates: start: 20141117
  4. BEVACIZUMAB [Suspect]
     Active Substance: BEVACIZUMAB
     Dosage: LAST DATE OF ADMINISTRATION: 09/FEB/2016, THERAPY DURATION 66 WEEKS?ANOTHER DOSE ON 21/JAN/2016 TEHG
     Route: 042
     Dates: start: 20141103
  5. PACLITAXEL. [Suspect]
     Active Substance: PACLITAXEL
     Indication: BREAST CANCER METASTATIC
     Dosage: DATE OF LAST DOSE PRIOR TO THE SAE: 16/FEB/2016?ANOTHER DOS EON 21/JAN/2016, THERAPY DURATION 62 WEE
     Route: 042
     Dates: start: 20141103
  6. BISACODYL. [Concomitant]
     Active Substance: BISACODYL
     Route: 065
     Dates: start: 20151130
  7. CAPECITABINE. [Suspect]
     Active Substance: CAPECITABINE
     Indication: BREAST CANCER METASTATIC
     Route: 048

REACTIONS (3)
  - Disease progression [Fatal]
  - Ascites [Recovered/Resolved]
  - Ascites [Recovered/Resolved]

NARRATIVE: CASE EVENT DATE: 20151219
